FAERS Safety Report 6539569-X (Version None)
Quarter: 2010Q1

REPORT INFORMATION
  Report Type: 
  Country: None (occurrence: None)
  Receive Date: 20100115
  Receipt Date: 20100112
  Transmission Date: 20100710
  Serious: Yes (Hospitalization)
  Sender: FDA-Public Use
  Company Number: B0626096A

PATIENT
  Sex: Female

DRUGS (2)
  1. AUGMENTIN '125' [Suspect]
     Indication: ERYSIPELAS
     Dosage: 2G PER DAY
     Route: 048
     Dates: start: 20090210, end: 20090215
  2. SELEPARINA [Concomitant]
     Route: 042
     Dates: start: 20090210, end: 20090215

REACTIONS (2)
  - ERYTHEMA [None]
  - PRURITUS [None]
